FAERS Safety Report 5420786-7 (Version None)
Quarter: 2007Q3

REPORT INFORMATION
  Report Type: 
  Country: None (occurrence: None)
  Receive Date: 20070816
  Receipt Date: 20070720
  Transmission Date: 20080115
  Serious: Yes (Other)
  Sender: FDA-Public Use
  Company Number: 6036244

PATIENT
  Age: 56 Year
  Sex: Male

DRUGS (4)
  1. FLUCONAZOLE [Suspect]
     Indication: ORAL CANDIDIASIS
     Dosage: 50 MG (50 MG, 1 IN 1 D), 200 MG (200 MG, 1 IN 1 D)
  2. GLICLAZIDE (FLICLAZIDE) [Suspect]
     Indication: DIABETES MELLITUS
     Dosage: 160 MG (160 MG, 1 IN 1 D)
  3. SULFAMETHOXAZOLE [Suspect]
     Indication: DRUG USE FOR UNKNOWN INDICATION
     Dosage: 400 MG (400 MG, 1 IN 1 D)
  4. TRIMETHOPRIM [Concomitant]

REACTIONS (5)
  - AGGRESSION [None]
  - ASTHENIA [None]
  - DRUG INTERACTION [None]
  - HYPOGLYCAEMIA [None]
  - LOSS OF CONSCIOUSNESS [None]
